FAERS Safety Report 9083220 (Version 1)
Quarter: 2013Q1

REPORT INFORMATION
  Report Type: Report from Study
  Country: US (occurrence: US)
  Receive Date: 20130130
  Receipt Date: 20130130
  Transmission Date: 20140127
  Serious: No
  Sender: FDA-Public Use
  Company Number: US-ABBOTT-12P-163-0946689-00

PATIENT
  Sex: Female
  Weight: 90.8 kg

DRUGS (15)
  1. HUMIRA 40 MG/0.8 ML PEN [Suspect]
     Indication: PSORIATIC ARTHROPATHY
     Route: 058
     Dates: start: 2008, end: 2008
  2. HUMIRA 40 MG/0.8 ML PEN [Suspect]
     Route: 058
     Dates: start: 2008, end: 201206
  3. UNKNOWN MEDICATION [Concomitant]
     Indication: BLOOD CHOLESTEROL INCREASED
  4. UNKNOWN MEDICATION [Concomitant]
     Indication: FIBROMYALGIA
  5. UNKNOWN MEDICATION [Concomitant]
     Indication: DEPRESSION
  6. FISH OIL [Concomitant]
     Indication: PRODUCT USED FOR UNKNOWN INDICATION
  7. CALCIUM PLUS VITAMIN D [Concomitant]
     Indication: PRODUCT USED FOR UNKNOWN INDICATION
  8. MULTIVITAMIN [Concomitant]
     Indication: PRODUCT USED FOR UNKNOWN INDICATION
  9. ZINC [Concomitant]
     Indication: PRODUCT USED FOR UNKNOWN INDICATION
  10. WELLBUTRIN [Concomitant]
     Indication: PRODUCT USED FOR UNKNOWN INDICATION
  11. NIACIN [Concomitant]
     Indication: PRODUCT USED FOR UNKNOWN INDICATION
  12. FLEXERIL [Concomitant]
  13. LYRICA [Concomitant]
     Indication: PRODUCT USED FOR UNKNOWN INDICATION
  14. PROTONIX [Concomitant]
     Indication: GASTRIC DISORDER
  15. TRAMADOL [Concomitant]
     Indication: FIBROMYALGIA

REACTIONS (2)
  - Drug ineffective [Unknown]
  - Psoriasis [Recovering/Resolving]
